FAERS Safety Report 9822049 (Version 1)
Quarter: 2014Q1

REPORT INFORMATION
  Report Type: Report from Study
  Country: DE (occurrence: DE)
  Receive Date: 20140116
  Receipt Date: 20140116
  Transmission Date: 20141002
  Serious: Yes (Other)
  Sender: FDA-Public Use
  Company Number: DE-SA-2014SA003685

PATIENT
  Age: 69 Year
  Sex: Female
  Weight: 91 kg

DRUGS (9)
  1. MULTAQ [Suspect]
     Indication: ATRIAL FIBRILLATION
     Route: 048
     Dates: start: 20120420
  2. BETA BLOCKING AGENTS [Concomitant]
  3. DIGITALIS GLYCOSIDES [Concomitant]
  4. VIT K ANTAGONISTS [Concomitant]
     Indication: ANTICOAGULANT THERAPY
     Dates: start: 20100421
  5. HYDROCHLOROTHIAZIDE [Concomitant]
  6. LOSARTAN [Concomitant]
  7. METFORMIN [Concomitant]
  8. JANUVIA [Concomitant]
  9. DIAZEPAM [Concomitant]

REACTIONS (1)
  - Atrial fibrillation [Unknown]
